FAERS Safety Report 8503857-8 (Version None)
Quarter: 2012Q3

REPORT INFORMATION
  Report Type: 
  Country: None (occurrence: None)
  Receive Date: 20120711
  Receipt Date: 20120702
  Transmission Date: 20120928
  Serious: Yes (Other)
  Sender: FDA-Public Use
  Company Number: JP-BRISTOL-MYERS SQUIBB COMPANY-16749186

PATIENT
  Weight: 55 kg

DRUGS (1)
  1. ABILIFY [Suspect]
     Dosage: IN JUN 2012 DOSE INCREASED
     Route: 048
     Dates: end: 20120601

REACTIONS (6)
  - POLYURIA [None]
  - NAUSEA [None]
  - GLUCOSE URINE PRESENT [None]
  - VOMITING [None]
  - WEIGHT DECREASED [None]
  - ELECTROLYTE DEPLETION [None]
